FAERS Safety Report 7246155-5 (Version None)
Quarter: 2011Q1

REPORT INFORMATION
  Report Type: 
  Country: None (occurrence: None)
  Receive Date: 20110126
  Receipt Date: 20110119
  Transmission Date: 20110831
  Serious: Yes (Hospitalization)
  Sender: FDA-Public Use
  Company Number: A0908780A

PATIENT
  Sex: Female

DRUGS (1)
  1. PAXIL [Suspect]
     Indication: BIPOLAR DISORDER
     Route: 048

REACTIONS (8)
  - INSOMNIA [None]
  - IMPAIRED DRIVING ABILITY [None]
  - LOSS OF CONSCIOUSNESS [None]
  - CONFUSIONAL STATE [None]
  - SUICIDE ATTEMPT [None]
  - PANIC ATTACK [None]
  - DECREASED APPETITE [None]
  - DYSKINESIA [None]
